FAERS Safety Report 7984649-5 (Version None)
Quarter: 2011Q4

REPORT INFORMATION
  Report Type: 
  Country: None (occurrence: None)
  Receive Date: 20111216
  Receipt Date: 20111213
  Transmission Date: 20120403
  Serious: Yes (Life-Threatening)
  Sender: FDA-Public Use
  Company Number: JP-SANOFI-AVENTIS-2011SA059976

PATIENT
  Age: 60 Year
  Sex: Female

DRUGS (2)
  1. RADICUT [Concomitant]
  2. PLAVIX [Suspect]
     Dosage: START DATE REPORTED AS AROUND THE END OF AUG-2011
     Route: 065
     Dates: start: 20110801, end: 20110901

REACTIONS (1)
  - HEPATITIS C [None]
